FAERS Safety Report 15365013 (Version 1)
Quarter: 2018Q3

REPORT INFORMATION
  Report Type: Spontaneous
  Country: DE (occurrence: DE)
  Receive Date: 20180910
  Receipt Date: 20180910
  Transmission Date: 20181010
  Serious: Yes (Hospitalization, Other)
  Sender: FDA-Public Use
  Company Number: DE-009507513-1808DEU011719

PATIENT
  Age: 47 Year
  Sex: Female
  Weight: 65 kg

DRUGS (8)
  1. AMBISOME [Suspect]
     Active Substance: AMPHOTERICIN B
     Indication: MUCORMYCOSIS
     Dosage: 420 MG, UNK
     Route: 042
     Dates: start: 20150911, end: 20160122
  2. ATOSIL [Concomitant]
     Active Substance: PROMETHAZINE HYDROCHLORIDE
     Indication: BLOOD ALCOHOL INCREASED
     Dosage: HALF AMPULE
  3. CLEXANE (ENOXAPARIN SODIUM) [Concomitant]
     Active Substance: ENOXAPARIN SODIUM
     Indication: THROMBOSIS PROPHYLAXIS
     Dosage: UNK, QD
  4. POSACONAZOLE [Suspect]
     Active Substance: POSACONAZOLE
     Indication: MUCORMYCOSIS
     Dosage: UPTO 2X300 MG/DAY
     Dates: start: 20150919, end: 20160321
  5. LANTUS [Concomitant]
     Active Substance: INSULIN GLARGINE
     Indication: DIABETES MELLITUS
     Dosage: UNK, PRN
  6. ACTRAPID [Concomitant]
     Active Substance: INSULIN HUMAN
     Indication: DIABETES MELLITUS
     Dosage: UNK, PRN
  7. ASS 100 [Concomitant]
     Active Substance: ASPIRIN
  8. CITALOPRAM [Concomitant]
     Active Substance: CITALOPRAM HYDROBROMIDE

REACTIONS (7)
  - Anaemia [Recovered/Resolved]
  - Renal failure [Recovering/Resolving]
  - Vomiting [Recovered/Resolved]
  - Apathy [Recovered/Resolved]
  - Hypokalaemia [Recovered/Resolved]
  - Off label use [Unknown]
  - Protein deficiency [Recovered/Resolved]

NARRATIVE: CASE EVENT DATE: 2015
